FAERS Safety Report 9232146 (Version 2)
Quarter: 2013Q2

REPORT INFORMATION
  Report Type: Spontaneous
  Country: JP (occurrence: JP)
  Receive Date: 20130415
  Receipt Date: 20130514
  Transmission Date: 20140414
  Serious: Yes (Death, Life-Threatening, Hospitalization, Other)
  Sender: FDA-Public Use
  Company Number: JP-PFIZER INC-2013116610

PATIENT
  Age: 83 Year
  Sex: Male
  Weight: 53 kg

DRUGS (13)
  1. LYRICA [Suspect]
     Indication: POST HERPETIC NEURALGIA
     Dosage: 25 MG, 3X/DAY
     Route: 048
     Dates: start: 20120424
  2. CALONAL [Concomitant]
     Dosage: 200 MG, 3X/DAY
     Route: 048
     Dates: start: 20120424
  3. VALTREX [Concomitant]
     Dosage: 1200 MG, 2X/DAY
     Route: 048
     Dates: start: 20120420
  4. SAWACILLIN [Concomitant]
     Dosage: 250 MG, 3X/DAY
     Route: 048
     Dates: start: 20120417
  5. AZUNOL [Concomitant]
     Dosage: 20 MG, 1OR 2 TIMES A DAY AS NEEDED
     Route: 062
     Dates: start: 20120417
  6. WARFARIN [Concomitant]
     Dosage: 2 MG, 1X/DAY AFTER BREAKFAST
     Route: 048
     Dates: start: 20120402
  7. ALLOPURINOL [Concomitant]
     Dosage: 100 MG, 1X/DAY AFTER BREAKFAST
     Route: 048
     Dates: start: 20120402
  8. FUROSEMIDE [Concomitant]
     Dosage: 40 MG, 1X/DAY AFTER BREAKFAST
     Route: 048
     Dates: start: 20120402
  9. FUROSEMIDE [Concomitant]
     Dosage: 20 MG, 1X/DAY AFTER LUNCH
     Route: 048
  10. PLETAAL [Concomitant]
     Dosage: 100 MG, 2X/DAY AFTER BREAKFAST AND SUPPER
     Route: 048
     Dates: start: 20120402
  11. ALDACTONE-A [Concomitant]
     Dosage: 50 MG, 2X/DAY AFTER BREAKFAST AND SUPPER
     Route: 048
     Dates: start: 20120402
  12. SHAKUYAKU-KANZO-TO [Concomitant]
     Dosage: 25 MG, 3X/DAY
     Route: 048
     Dates: start: 20120402
  13. ASPARA-CA [Concomitant]
     Dosage: 200 MG, 2X/DAY
     Route: 048
     Dates: start: 20120402

REACTIONS (3)
  - Cardiac failure [Fatal]
  - Ejection fraction decreased [Unknown]
  - Brain natriuretic peptide increased [Unknown]
